FAERS Safety Report 25914174 (Version 1)
Quarter: 2025Q4

REPORT INFORMATION
  Report Type: Report from Study
  Country: US (occurrence: US)
  Receive Date: 20251013
  Receipt Date: 20251013
  Transmission Date: 20260118
  Serious: No
  Sender: MALLINCKRODT
  Company Number: US-MALLINCKRODT-MNK202506324

PATIENT
  Sex: Male

DRUGS (1)
  1. CORTICOTROPIN [Suspect]
     Active Substance: CORTICOTROPIN
     Indication: Polymyalgia rheumatica
     Dosage: 40 UNITS
     Dates: start: 20241120

REACTIONS (3)
  - Dyspnoea exertional [Unknown]
  - Initial insomnia [Unknown]
  - Therapeutic response shortened [Unknown]
